FAERS Safety Report 13819622 (Version 1)
Quarter: 2017Q3

REPORT INFORMATION
  Report Type: Report from Study
  Country: US (occurrence: US)
  Receive Date: 20170731
  Receipt Date: 20170731
  Transmission Date: 20171127
  Serious: Yes (Hospitalization)
  Sender: FDA-Public Use
  Company Number: US-IPSEN-CABO-17008888

PATIENT
  Age: 75 Year
  Sex: Female

DRUGS (14)
  1. VICTOZA [Concomitant]
     Active Substance: LIRAGLUTIDE
  2. BACLOFEN. [Concomitant]
     Active Substance: BACLOFEN
  3. DRONABINOL. [Concomitant]
     Active Substance: DRONABINOL
  4. GABAPENTIN. [Concomitant]
     Active Substance: GABAPENTIN
  5. DEXAMETHASONE. [Concomitant]
     Active Substance: DEXAMETHASONE
  6. GLIMEPIRIDE. [Concomitant]
     Active Substance: GLIMEPIRIDE
  7. METFORMIN HCL [Concomitant]
     Active Substance: METFORMIN HYDROCHLORIDE
  8. SIMVASTATIN. [Concomitant]
     Active Substance: SIMVASTATIN
  9. MIRTAZAPINE. [Concomitant]
     Active Substance: MIRTAZAPINE
  10. FENTANYL. [Concomitant]
     Active Substance: FENTANYL
  11. RESTASIS [Concomitant]
     Active Substance: CYCLOSPORINE
  12. HYDROMORPHONE HCL [Concomitant]
     Active Substance: HYDROMORPHONE HYDROCHLORIDE
  13. CABOMETYX [Suspect]
     Active Substance: CABOZANTINIB S-MALATE
     Indication: RENAL CANCER
     Dosage: 40 MG, QD
     Route: 048
     Dates: start: 20170330
  14. HYDRALAZINE HCL [Concomitant]
     Active Substance: HYDRALAZINE HYDROCHLORIDE

REACTIONS (2)
  - Nausea [Unknown]
  - Malaise [Unknown]

NARRATIVE: CASE EVENT DATE: 20170411
